APPROVED DRUG PRODUCT: METOCLOPRAMIDE HYDROCHLORIDE
Active Ingredient: METOCLOPRAMIDE HYDROCHLORIDE
Strength: EQ 10MG BASE/2ML
Dosage Form/Route: INJECTABLE;INJECTION
Application: A070293 | Product #001
Applicant: LYPHOMED DIV FUJISAWA USA INC
Approved: Jan 24, 1986 | RLD: No | RS: No | Type: DISCN